FAERS Safety Report 13400652 (Version 1)
Quarter: 2017Q2

REPORT INFORMATION
  Report Type: Report from Study
  Country: US (occurrence: US)
  Receive Date: 20170404
  Receipt Date: 20170404
  Transmission Date: 20170830
  Serious: Yes (Hospitalization)
  Sender: FDA-Public Use
  Company Number: US-BIOGEN-2017BI00382536

PATIENT
  Age: 46 Year
  Sex: Female

DRUGS (2)
  1. TYSABRI [Suspect]
     Active Substance: NATALIZUMAB
     Indication: MULTIPLE SCLEROSIS
     Route: 065
     Dates: start: 20061120, end: 20140905
  2. TYSABRI [Suspect]
     Active Substance: NATALIZUMAB
     Route: 065
     Dates: start: 20160226, end: 20160325

REACTIONS (6)
  - Overdose [Unknown]
  - Vomiting [Unknown]
  - Pancreatitis [Unknown]
  - Ill-defined disorder [Unknown]
  - Intestinal obstruction [Unknown]
  - Dehydration [Unknown]

NARRATIVE: CASE EVENT DATE: 200909
